FAERS Safety Report 8336777 (Version 5)
Quarter: 2013Q1

REPORT INFORMATION
  Report Type: Report from Study
  Country: US (occurrence: US)
  Receive Date: 20120113
  Receipt Date: 20130212
  Transmission Date: 20140127
  Serious: Yes (Hospitalization)
  Sender: FDA-Public Use
  Company Number: US-NOVOPROD-340007

PATIENT
  Age: 21 Year
  Sex: Female
  Weight: 79.1 kg

DRUGS (5)
  1. LIRAGLUTIDE FLEXPEN [Suspect]
     Indication: OBESITY
     Dosage: 0.6 MG, QD
     Dates: start: 20111027
  2. LIRAGLUTIDE FLEXPEN [Suspect]
     Dosage: 1.8 MG, QD
     Route: 058
     Dates: start: 20111110, end: 20111114
  3. OMEPRAZOLE [Concomitant]
     Indication: PRODUCT USED FOR UNKNOWN INDICATION
     Dosage: 20.0 MG, UNK
     Dates: start: 20111117
  4. LEVONORGESTREL W/ETHINYLESTRADIOL [Concomitant]
     Indication: PROPHYLAXIS
     Dosage: 1.0 TAB, QD
     Dates: start: 20110801
  5. NORETHINDRONE [Concomitant]
     Indication: CONTRACEPTION
     Dosage: 8.0 MG, QD
     Dates: start: 20111127

REACTIONS (1)
  - Adnexa uteri cyst [Recovered/Resolved]
